FAERS Safety Report 23188050 (Version 1)
Quarter: 2023Q4

REPORT INFORMATION
  Report Type: Spontaneous
  Country: CN (occurrence: CN)
  Receive Date: 20231115
  Receipt Date: 20231115
  Transmission Date: 20240109
  Serious: Yes (Other)
  Sender: FDA-Public Use
  Company Number: CN-PFIZER INC-PV202300184159

PATIENT

DRUGS (3)
  1. AVIBACTAM SODIUM [Suspect]
     Active Substance: AVIBACTAM SODIUM
     Indication: Product used for unknown indication
     Dosage: BETWEEN 3 PM AND 3 AM ON THE FIRST DAY, IN 12 HOURS, 2 DOSES
     Route: 065
  2. AVIBACTAM SODIUM [Suspect]
     Active Substance: AVIBACTAM SODIUM
     Indication: Product used for unknown indication
     Dosage: THE NEXT DAY, 4 DOSES
     Route: 065
  3. AVIBACTAM SODIUM [Suspect]
     Active Substance: AVIBACTAM SODIUM
     Indication: Product used for unknown indication
     Dosage: THE THIRD DAY, 3 DOSES
     Route: 065

REACTIONS (2)
  - Anuria [Unknown]
  - Off label use [Unknown]
